FAERS Safety Report 9493302 (Version 2)
Quarter: 2013Q3

REPORT INFORMATION
  Report Type: Report from Study
  Country: TW (occurrence: TW)
  Receive Date: 20130902
  Receipt Date: 20130902
  Transmission Date: 20140515
  Serious: Yes (Hospitalization)
  Sender: FDA-Public Use
  Company Number: PHHO2011TW01493

PATIENT
  Age: 78 Year
  Sex: Female

DRUGS (3)
  1. ALISKIREN [Suspect]
     Route: 048
     Dates: start: 20080402
  2. FUROSEMIDE [Concomitant]
     Indication: HYPERTENSION
  3. CONCOR [Concomitant]
     Indication: HYPERTENSION

REACTIONS (4)
  - Renal failure chronic [Not Recovered/Not Resolved]
  - Concomitant disease progression [Not Recovered/Not Resolved]
  - Oedema peripheral [Not Recovered/Not Resolved]
  - Oliguria [Not Recovered/Not Resolved]
